FAERS Safety Report 14620778 (Version 1)
Quarter: 2018Q1

REPORT INFORMATION
  Report Type: Spontaneous
  Country: FR (occurrence: FR)
  Receive Date: 20180309
  Receipt Date: 20180309
  Transmission Date: 20180509
  Serious: Yes (Death, Other)
  Sender: FDA-Public Use
  Company Number: FR-SA-2018SA055463

PATIENT
  Age: 70 Year
  Sex: Male
  Weight: 61 kg

DRUGS (2)
  1. HEPARINE CHOAY [Suspect]
     Active Substance: HEPARIN SODIUM
     Route: 042
  2. LOVENOX [Suspect]
     Active Substance: ENOXAPARIN SODIUM
     Route: 058
     Dates: start: 20171110, end: 20171110

REACTIONS (3)
  - Anticoagulation drug level increased [Recovered/Resolved]
  - Incorrect dose administered [Unknown]
  - Wrong drug [Unknown]

NARRATIVE: CASE EVENT DATE: 20171111
